FAERS Safety Report 18521984 (Version 1)
Quarter: 2020Q4

REPORT INFORMATION
  Report Type: Spontaneous
  Country: US (occurrence: US)
  Receive Date: 20201119
  Receipt Date: 20201119
  Transmission Date: 20210114
  Serious: No
  Sender: FDA-Public Use
  Company Number: US-IMMUNOMEDICS, INC.-2020IMMU000495

PATIENT
  Sex: Female
  Weight: 104.31 kg

DRUGS (2)
  1. TRODELVY [Suspect]
     Active Substance: SACITUZUMAB GOVITECAN-HZIY
     Dosage: 780 MG, DAY 1 AND 8 OF 21 DAY CYCLE
     Route: 065
     Dates: start: 202006, end: 202006
  2. TRODELVY [Suspect]
     Active Substance: SACITUZUMAB GOVITECAN-HZIY
     Dosage: 1080 MG, DAY 1 AND 8 OF 21 DAY CYCLE
     Route: 065
     Dates: start: 202006, end: 202006

REACTIONS (1)
  - Platelet count decreased [Unknown]
